FAERS Safety Report 13050191 (Version 1)
Quarter: 2016Q4

REPORT INFORMATION
  Report Type: Report from Study
  Country: None (occurrence: US)
  Receive Date: 20161221
  Receipt Date: 20161221
  Transmission Date: 20170207
  Serious: Yes (Other)
  Sender: FDA-Public Use
  Company Number: US-BIOVITRUM-2016US0091

PATIENT
  Sex: Male

DRUGS (2)
  1. KINERET [Suspect]
     Active Substance: ANAKINRA
  2. KINERET [Suspect]
     Active Substance: ANAKINRA
     Indication: CARDIAC FAILURE ACUTE

REACTIONS (1)
  - Acute kidney injury [Recovered/Resolved]
